FAERS Safety Report 5222964-9 (Version None)
Quarter: 2007Q1

REPORT INFORMATION
  Report Type: 
  Country: None (occurrence: None)
  Receive Date: 20070129
  Receipt Date: 20070117
  Transmission Date: 20070707
  Serious: Yes (Other)
  Sender: FDA-Public Use
  Company Number: FR-PFIZER INC-2006141398

PATIENT
  Sex: Male
  Weight: 73 kg

DRUGS (4)
  1. LYRICA [Suspect]
     Indication: NEURALGIA
     Route: 048
     Dates: start: 20051101, end: 20060201
  2. TILDIEM [Concomitant]
     Indication: ANGIOPATHY
     Route: 048
  3. ASPIRIN [Concomitant]
     Indication: ANGIOPATHY
     Route: 048
     Dates: start: 20020101
  4. VASTEN [Concomitant]
     Indication: ANGIOPATHY
     Route: 048
     Dates: start: 20030101

REACTIONS (3)
  - ERECTILE DYSFUNCTION [None]
  - GASTROINTESTINAL MOTILITY DISORDER [None]
  - WEIGHT INCREASED [None]
